FAERS Safety Report 5332417-5 (Version None)
Quarter: 2007Q2

REPORT INFORMATION
  Report Type: 
  Country: None (occurrence: None)
  Receive Date: 20070523
  Receipt Date: 20070515
  Transmission Date: 20071010
  Serious: Yes (Hospitalization, Other)
  Sender: FDA-Public Use
  Company Number: CA-JNJFOC-20070503749

PATIENT
  Sex: Male
  Weight: 88.8 kg

DRUGS (1)
  1. REMICADE [Suspect]
     Indication: ANKYLOSING SPONDYLITIS
     Route: 042

REACTIONS (3)
  - BONE NEOPLASM MALIGNANT [None]
  - RENAL CANCER METASTATIC [None]
  - UPPER LIMB FRACTURE [None]
